FAERS Safety Report 20186848 (Version 1)
Quarter: 2021Q4

REPORT INFORMATION
  Report Type: Spontaneous
  Country: CN (occurrence: None)
  Receive Date: 20211215
  Receipt Date: 20211215
  Transmission Date: 20220303
  Serious: Yes (Other)
  Sender: FDA-Public Use
  Company Number: CN-ROCHE-2974068

PATIENT
  Age: 37 Year
  Sex: Female

DRUGS (7)
  1. GAZYVA [Suspect]
     Active Substance: OBINUTUZUMAB
     Indication: Follicular lymphoma
     Route: 042
     Dates: start: 20211116
  2. CYCLOPHOSPHAMIDE [Concomitant]
     Active Substance: CYCLOPHOSPHAMIDE
     Indication: Follicular lymphoma
     Dates: start: 20211112
  3. CYCLOPHOSPHAMIDE [Concomitant]
     Active Substance: CYCLOPHOSPHAMIDE
     Dates: start: 20211116
  4. EPIRUBICIN [Concomitant]
     Active Substance: EPIRUBICIN
     Indication: Follicular lymphoma
     Dates: start: 20211116
  5. VINDESINE [Concomitant]
     Active Substance: VINDESINE
     Indication: Follicular lymphoma
     Dates: start: 20211116
  6. DEXAMETHASONE [Concomitant]
     Active Substance: DEXAMETHASONE
     Indication: Follicular lymphoma
     Dates: start: 20211112
  7. DEXAMETHASONE [Concomitant]
     Active Substance: DEXAMETHASONE
     Dates: start: 20211116

REACTIONS (2)
  - Myelosuppression [Unknown]
  - Respiratory tract infection [Unknown]
